FAERS Safety Report 8257534-1 (Version None)
Quarter: 2012Q2

REPORT INFORMATION
  Report Type: 
  Country: None (occurrence: None)
  Receive Date: 20120403
  Receipt Date: 20120319
  Transmission Date: 20120825
  Serious: Yes (Other)
  Sender: FDA-Public Use
  Company Number: JP-WATSON-2012-05044

PATIENT
  Age: 78 Year
  Sex: Male

DRUGS (2)
  1. LISOMUCIL [Concomitant]
     Indication: PRODUCT USED FOR UNKNOWN INDICATION
     Dosage: UNK
     Route: 048
  2. RAPAFLO [Suspect]
     Indication: BENIGN PROSTATIC HYPERPLASIA
     Dosage: 8 MG, DAILY
     Route: 048
     Dates: start: 20120206, end: 20120207

REACTIONS (3)
  - DYSPNOEA [None]
  - HYPERHIDROSIS [None]
  - NIGHTMARE [None]
